FAERS Safety Report 6911263-2 (Version None)
Quarter: 2010Q3

REPORT INFORMATION
  Report Type: 
  Country: None (occurrence: None)
  Receive Date: 20100806
  Receipt Date: 20100726
  Transmission Date: 20110219
  Serious: Yes (Hospitalization, Other)
  Sender: FDA-Public Use
  Company Number: PHHY2010FR46373

PATIENT
  Age: 81 Year
  Sex: Female

DRUGS (2)
  1. GLEEVEC [Suspect]
     Indication: GASTROINTESTINAL STROMAL TUMOUR
     Dosage: 400 MG 1 DF DAILY
     Dates: start: 20100708
  2. GLEEVEC [Suspect]
     Dosage: 100 MG UNIT (200 MG MORNING + 200 MG EVENING)
     Route: 048

REACTIONS (6)
  - ACUTE PULMONARY OEDEMA [None]
  - ANAEMIA [None]
  - HYPOPHAGIA [None]
  - NAUSEA [None]
  - RASH GENERALISED [None]
  - VOMITING [None]
